FAERS Safety Report 8046210-6 (Version None)
Quarter: 2012Q1

REPORT INFORMATION
  Report Type: 
  Country: None (occurrence: None)
  Receive Date: 20120113
  Receipt Date: 20120111
  Transmission Date: 20120608
  Serious: Yes (Other)
  Sender: FDA-Public Use
  Company Number: US-PFIZER INC-2012008759

PATIENT
  Sex: Female

DRUGS (1)
  1. ZOLOFT [Suspect]
     Indication: DEPRESSION
     Dosage: UNK
     Dates: start: 19990101

REACTIONS (3)
  - SURGERY [None]
  - CEREBROVASCULAR ACCIDENT [None]
  - HEARING IMPAIRED [None]
